FAERS Safety Report 4674330-2 (Version None)
Quarter: 2005Q2

REPORT INFORMATION
  Report Type: 
  Country: None (occurrence: None)
  Receive Date: 20050524
  Receipt Date: 20050506
  Transmission Date: 20051028
  Serious: Yes (Death, Other)
  Sender: FDA-Public Use
  Company Number: USA050392308

PATIENT
  Sex: Female

DRUGS (7)
  1. ALIMTA [Suspect]
     Indication: NON-SMALL CELL LUNG CANCER STAGE IV
     Dates: start: 20050301
  2. FOLIC ACID [Concomitant]
  3. VITAMIN B-12 [Concomitant]
  4. DEXAMETHASONE [Concomitant]
  5. PROCRIT (EPOETIN ALFA) [Concomitant]
  6. CORTICOSTEROID NOS [Concomitant]
  7. MARINOL [Concomitant]

REACTIONS (10)
  - BLOOD PH INCREASED [None]
  - CARDIO-RESPIRATORY ARREST [None]
  - ELECTROCARDIOGRAM ST SEGMENT ELEVATION [None]
  - LOSS OF CONSCIOUSNESS [None]
  - MYOCARDIAL INFARCTION [None]
  - PALPITATIONS [None]
  - PULSE ABSENT [None]
  - PUPIL FIXED [None]
  - VENTRICULAR FIBRILLATION [None]
  - VENTRICULAR TACHYCARDIA [None]
